FAERS Safety Report 7797552-0 (Version None)
Quarter: 2011Q4

REPORT INFORMATION
  Report Type: 
  Country: None (occurrence: None)
  Receive Date: 20111004
  Receipt Date: 20111004
  Transmission Date: 20120403
  Serious: Yes (Other)
  Sender: FDA-Public Use
  Company Number: None

PATIENT
  Sex: Female

DRUGS (1)
  1. ENBREL [Suspect]
     Indication: RHEUMATOID ARTHRITIS
     Dosage: 50MG QW SUBQ
     Route: 058
     Dates: start: 20080226, end: 20110801

REACTIONS (2)
  - BENIGN LUNG NEOPLASM [None]
  - BENIGN BREAST NEOPLASM [None]
